FAERS Safety Report 6838015-6 (Version None)
Quarter: 2010Q3

REPORT INFORMATION
  Report Type: 
  Country: None (occurrence: None)
  Receive Date: 20100713
  Receipt Date: 20070530
  Transmission Date: 20110219
  Serious: No
  Sender: FDA-Public Use
  Company Number: US-PFIZER INC-2007046083

PATIENT
  Sex: Male
  Weight: 72.6 kg

DRUGS (7)
  1. CHANTIX [Suspect]
     Indication: SMOKING CESSATION THERAPY
     Dates: start: 20070101
  2. HYDROCODONE BITARTRATE [Concomitant]
  3. VYTORIN [Concomitant]
     Dosage: 10/20 MG
  4. MORPHINE SULFATE [Concomitant]
  5. CLONIDINE HYDROCHLORIDE [Concomitant]
  6. BUPIVACAINE HYDROCHLORIDE [Concomitant]
  7. DROPERIDOL [Concomitant]

REACTIONS (2)
  - ANXIETY [None]
  - HEART RATE INCREASED [None]
